FAERS Safety Report 4462585-9 (Version None)
Quarter: 2004Q3

REPORT INFORMATION
  Report Type: 
  Country: None (occurrence: None)
  Receive Date: 20040928
  Receipt Date: 20040914
  Transmission Date: 20050211
  Serious: Yes (Death)
  Sender: FDA-Public Use
  Company Number: 04H-141-0273373-00

PATIENT

DRUGS (4)
  1. LEUCOVORIN CALCIUM [Suspect]
     Indication: CHEMOTHERAPY
     Dosage: 300 MG/M2, EVERY 21 DAYS BTW 12/92 + 6/95, INTRAVENOUS
     Route: 042
  2. ETOPOSIDE [Suspect]
     Indication: CHEMOTHERAPY
     Dosage: 120 MG/M2, EVERY 21 DAYS BTW 12/92 + 6/95, INTRAVENOUS
     Route: 042
  3. FLUOROURACIL [Suspect]
     Indication: CHEMOTHERAPY
     Dosage: 500 MG/M2, EVERY 21 DAYS BTW 12/92 + 6/95, INTRAVENOUS
     Route: 042
  4. SODIUM CHLORIDE INJ [Concomitant]

REACTIONS (1)
  - NEUTROPENIC SEPSIS [None]
